FAERS Safety Report 7268233-7 (Version None)
Quarter: 2011Q1

REPORT INFORMATION
  Report Type: 
  Country: None (occurrence: None)
  Receive Date: 20110201
  Receipt Date: 20110124
  Transmission Date: 20110831
  Serious: Yes (Hospitalization)
  Sender: FDA-Public Use
  Company Number: PHHY2011IT02570

PATIENT
  Sex: Female

DRUGS (1)
  1. GLEEVEC [Suspect]
     Indication: CHRONIC MYELOID LEUKAEMIA
     Dosage: 4 DF, UNK
     Route: 048
     Dates: start: 20071130, end: 20100801

REACTIONS (2)
  - B-CELL LYMPHOMA [None]
  - NEOPLASM MALIGNANT [None]
